FAERS Safety Report 23290195 (Version 3)
Quarter: 2024Q1

REPORT INFORMATION
  Report Type: Report from Study
  Country: US (occurrence: US)
  Receive Date: 20231213
  Receipt Date: 20240111
  Transmission Date: 20240409
  Serious: Yes (Hospitalization, Other)
  Sender: FDA-Public Use
  Company Number: US-ABBVIE-5526676

PATIENT
  Age: 70 Year
  Sex: Male
  Weight: 95.254 kg

DRUGS (2)
  1. HUMIRA [Suspect]
     Active Substance: ADALIMUMAB
     Indication: Hidradenitis
     Dosage: FORM STRENGTH: 40 MG, CITRATE FREE
     Route: 058
     Dates: start: 20210901
  2. HUMIRA [Suspect]
     Active Substance: ADALIMUMAB

REACTIONS (11)
  - Transplant [Unknown]
  - Vascular dementia [Unknown]
  - Hospice care [Not Recovered/Not Resolved]
  - Amnesia [Unknown]
  - Pruritus [Not Recovered/Not Resolved]
  - Neoplasm malignant [Unknown]
  - Mental disorder [Unknown]
  - Pain [Unknown]
  - Terminal state [Unknown]
  - Confusional state [Unknown]
  - Hospice care [Recovered/Resolved]

NARRATIVE: CASE EVENT DATE: 20230501
